FAERS Safety Report 6195621-2 (Version None)
Quarter: 2009Q2

REPORT INFORMATION
  Report Type: 
  Country: None (occurrence: None)
  Receive Date: 20090519
  Receipt Date: 20090513
  Transmission Date: 20091009
  Serious: Yes (Hospitalization)
  Sender: FDA-Public Use
  Company Number: PHHO2009VE05166

PATIENT
  Sex: Male
  Weight: 20 kg

DRUGS (1)
  1. ELIDEL ASM+CRE [Suspect]
     Indication: DERMATITIS ATOPIC
     Dosage: APPLIED TWICE DAILY
     Route: 061
     Dates: end: 20061017

REACTIONS (4)
  - DIARRHOEA [None]
  - LOWER RESPIRATORY TRACT INFECTION [None]
  - LUNG INFILTRATION [None]
  - PYREXIA [None]
